FAERS Safety Report 9390421 (Version 5)
Quarter: 2013Q4

REPORT INFORMATION
  Report Type: Report from Study
  Country: US (occurrence: US)
  Receive Date: 20130709
  Receipt Date: 20131016
  Transmission Date: 20140711
  Serious: Yes (Other)
  Sender: FDA-Public Use
  Company Number: PHEH2013US014389

PATIENT
  Age: 69 Year
  Sex: Female

DRUGS (22)
  1. DIOVAN [Suspect]
     Indication: HYPERTENSION
     Dosage: 160 MG, UKN
     Route: 048
     Dates: start: 1997
  2. DIOVAN [Suspect]
     Dosage: 160 MG, BID
     Route: 048
     Dates: start: 20130910
  3. ATENOLOL [Concomitant]
     Indication: CARDIAC DISORDER
     Dosage: UNK UKN, UNK
  4. NIASPAN [Concomitant]
     Indication: BLOOD CHOLESTEROL ABNORMAL
  5. LASIX [Concomitant]
     Indication: DIURETIC THERAPY
  6. METFORMIN [Concomitant]
     Indication: DIABETES MELLITUS
  7. AROMASIN [Concomitant]
     Indication: BREAST CANCER
  8. REQUIP [Concomitant]
     Indication: PARKINSON^S DISEASE
  9. SYNTHROID [Concomitant]
  10. ZOCOR [Concomitant]
     Indication: BLOOD CHOLESTEROL ABNORMAL
  11. ASA [Concomitant]
     Dosage: 81 MG, UNK
  12. BACLOFEN [Concomitant]
     Indication: MUSCLE SPASMS
     Dosage: UNK UKN, UNK
  13. INSULIN [Concomitant]
     Indication: DIABETES MELLITUS
     Dosage: UNK UKN, UNK
  14. NEURONTIN [Concomitant]
     Dosage: UNK UKN, UNK
  15. FISH OIL [Concomitant]
     Indication: SUPPLEMENTATION THERAPY
     Dosage: UNK UKN, UNK
  16. VITAMIN D3 [Concomitant]
     Indication: SUPPLEMENTATION THERAPY
     Dosage: UNK UKN, UNK
  17. DICYCLOMINE HCL [Concomitant]
     Dosage: UNK UKN, UNK
  18. GABAPENTIN [Concomitant]
     Indication: DIABETIC NEUROPATHY
  19. NORVASC [Concomitant]
     Dosage: UNK UKN, UNK
     Dates: start: 20130911
  20. BENTYL [Concomitant]
     Dosage: UNK UKN, UNK
  21. CENTRUM HEART [Concomitant]
     Dosage: UNK UKN, UNK
  22. FUROSEMIDE [Concomitant]

REACTIONS (6)
  - Breast cancer [Recovered/Resolved]
  - Neuropathy peripheral [Unknown]
  - Hypertension [Unknown]
  - Colitis [Unknown]
  - Diarrhoea [Unknown]
  - Blood pressure fluctuation [Unknown]
